FAERS Safety Report 11436146 (Version 1)
Quarter: 2015Q3

REPORT INFORMATION
  Report Type: Spontaneous
  Country: US (occurrence: US)
  Receive Date: 20150821
  Receipt Date: 20150821
  Transmission Date: 20151125
  Serious: No
  Sender: FDA-Public Use
  Company Number: US-ELI_LILLY_AND_COMPANY-US201403007111

PATIENT
  Sex: Female

DRUGS (1)
  1. HUMULIN L [Suspect]
     Active Substance: INSULIN HUMAN
     Indication: TYPE 1 DIABETES MELLITUS
     Dosage: 35 U, QD
     Route: 065
     Dates: start: 1975, end: 2008

REACTIONS (3)
  - Lower limb fracture [Recovered/Resolved]
  - Tremor [Unknown]
  - Blood glucose decreased [Unknown]

NARRATIVE: CASE EVENT DATE: 2001
